FAERS Safety Report 6754343-7 (Version None)
Quarter: 2010Q2

REPORT INFORMATION
  Report Type: 
  Country: None (occurrence: None)
  Receive Date: 20100603
  Receipt Date: 20100528
  Transmission Date: 20101027
  Serious: Yes (Death, Hospitalization)
  Sender: FDA-Public Use
  Company Number: US-BRISTOL-MYERS SQUIBB COMPANY-15112469

PATIENT
  Age: 66 Year
  Sex: Female
  Weight: 42 kg

DRUGS (2)
  1. ERBITUX [Suspect]
     Indication: NON-SMALL CELL LUNG CANCER
     Dates: start: 20100503, end: 20100503
  2. RADIATION THERAPY [Suspect]
     Indication: NON-SMALL CELL LUNG CANCER
     Dosage: TOTAL DOSE=18 GY;LAST DOSE 17-MAY-2010; NO:OF FRACTIONS 30, NO:OF ELASPSED DAYS 16
     Dates: start: 20100503

REACTIONS (2)
  - ATRIAL FIBRILLATION [None]
  - LUNG ABSCESS [None]
